FAERS Safety Report 12627402 (Version 1)
Quarter: 2016Q3

REPORT INFORMATION
  Report Type: Report from Study
  Country: US (occurrence: US)
  Receive Date: 20160805
  Receipt Date: 20160805
  Transmission Date: 20161109
  Serious: No
  Sender: FDA-Public Use
  Company Number: US-AMGEN-USASL2016081290

PATIENT
  Age: 59 Year
  Sex: Female

DRUGS (1)
  1. NPLATE [Suspect]
     Active Substance: ROMIPLOSTIM
     Indication: IMMUNE THROMBOCYTOPENIC PURPURA
     Dosage: EVERY OTHER WEEK
     Route: 065
     Dates: start: 201601

REACTIONS (5)
  - Platelet count abnormal [Unknown]
  - Drug dose omission [Unknown]
  - Off label use [Unknown]
  - Headache [Not Recovered/Not Resolved]
  - Fatigue [Unknown]
